FAERS Safety Report 8848852 (Version 1)
Quarter: 2012Q4

REPORT INFORMATION
  Report Type: 
  Country: TN (occurrence: TN)
  Receive Date: 20121018
  Receipt Date: 20121018
  Transmission Date: 20130627
  Serious: Yes (Death)
  Sender: FDA-Public Use
  Company Number: TN-SANOFI-AVENTIS-2012SA074277

PATIENT
  Age: 85 Year
  Sex: Male

DRUGS (7)
  1. PLAVIX [Suspect]
     Indication: MYOCARDIAL INFARCT
     Route: 048
     Dates: start: 20120531, end: 20120917
  2. PLAVIX [Suspect]
     Indication: STENT INSERTION NOS
     Route: 048
     Dates: start: 20120531, end: 20120917
  3. CRESTOR /UNK/ [Concomitant]
     Route: 048
     Dates: start: 20120531, end: 20120917
  4. LASILIX [Concomitant]
     Route: 048
     Dates: start: 20120531, end: 20120917
  5. OFLOCET [Concomitant]
     Route: 058
     Dates: start: 20120531, end: 20120917
  6. CORVASAL [Concomitant]
     Route: 048
     Dates: start: 20120531, end: 20120917
  7. MUCOLATOR [Concomitant]
     Route: 048
     Dates: start: 20120531, end: 20120917

REACTIONS (1)
  - General physical health deterioration [Fatal]
